FAERS Safety Report 11743827 (Version 2)
Quarter: 2015Q4

REPORT INFORMATION
  Report Type: Spontaneous
  Country: US (occurrence: US)
  Receive Date: 20151116
  Receipt Date: 20151118
  Transmission Date: 20160304
  Serious: Yes (Hospitalization)
  Sender: FDA-Public Use
  Company Number: US-SA-2015SA178995

PATIENT
  Age: 43 Year
  Sex: Female

DRUGS (3)
  1. TOUJEO [Suspect]
     Active Substance: INSULIN GLARGINE
     Dosage: DOSE:70 UNIT(S)
     Route: 065
     Dates: start: 201509
  2. TRULICITY [Concomitant]
     Active Substance: DULAGLUTIDE
  3. SOLOSTAR [Concomitant]
     Active Substance: DEVICE
     Dates: start: 201509

REACTIONS (1)
  - Myocardial infarction [Unknown]

NARRATIVE: CASE EVENT DATE: 20151101
